FAERS Safety Report 26077149 (Version 1)
Quarter: 2025Q4

REPORT INFORMATION
  Report Type: Report from Study
  Country: US (occurrence: US)
  Receive Date: 20251121
  Receipt Date: 20251121
  Transmission Date: 20260118
  Serious: Yes (Hospitalization)
  Sender: BAYER HEALTHCARE PHARMACEUTICALS INC.
  Company Number: US-BAYER-2025A136512

PATIENT
  Age: 72 Year
  Sex: Male

DRUGS (6)
  1. NUBEQA [Suspect]
     Active Substance: DAROLUTAMIDE
     Indication: Prostate cancer
     Dosage: 300 MG, BID
     Route: 048
  2. NUBEQA [Suspect]
     Active Substance: DAROLUTAMIDE
     Indication: Prostate cancer
     Dosage: 300 MG, BID
     Route: 048
  3. EZETIMIBE [Suspect]
     Active Substance: EZETIMIBE
     Dosage: 10MG
  4. LEUPROLIDE ACETATE [Concomitant]
     Active Substance: LEUPROLIDE ACETATE
     Dosage: 1MG/0.2M
  5. PAROXETINE HYDROCHLORIDE [Concomitant]
     Active Substance: PAROXETINE HYDROCHLORIDE
     Dosage: 40MG
  6. VALSARTAN [Concomitant]
     Active Substance: VALSARTAN
     Dosage: 320MG

REACTIONS (7)
  - Rash [None]
  - Hypotension [None]
  - Hot flush [None]
  - Skin hypertrophy [None]
  - Scab [None]
  - Product use issue [None]
  - Hyperhidrosis [None]

NARRATIVE: CASE EVENT DATE: 20250101
